FAERS Safety Report 8770234 (Version 3)
Quarter: 2013Q1

REPORT INFORMATION
  Report Type: Report from Study
  Country: US (occurrence: US)
  Receive Date: 20120906
  Receipt Date: 20130314
  Transmission Date: 20140127
  Serious: Yes (Hospitalization)
  Sender: FDA-Public Use
  Company Number: US-UCBSA-064378

PATIENT
  Age: 67 Year
  Sex: Female
  Weight: 87 kg

DRUGS (7)
  1. LACOSAMIDE [Suspect]
     Indication: EPILEPSY
     Route: 048
     Dates: start: 20120524
  2. LEVOXYL [Concomitant]
     Indication: HYPOTHYROIDISM
     Dates: start: 20110601
  3. ASPIRIN [Concomitant]
     Indication: CARDIOVASCULAR EVENT PROPHYLAXIS
     Dates: start: 201107
  4. MIRALAX [Concomitant]
     Indication: CONSTIPATION
     Dates: start: 20120418
  5. FLURAZEPAM [Concomitant]
     Indication: INSOMNIA
     Dates: start: 20120427
  6. PRED FORTE DROPS [Concomitant]
     Indication: CATARACT
     Dosage: 1% QID
     Route: 047
     Dates: start: 20120613
  7. CIPROFLOXACIN [Concomitant]
     Indication: URINARY TRACT INFECTION
     Dates: start: 20120815

REACTIONS (1)
  - Anaemia [Not Recovered/Not Resolved]
